FAERS Safety Report 15266952 (Version 2)
Quarter: 2018Q3

REPORT INFORMATION
  Report Type: Report from Study
  Country: US (occurrence: US)
  Receive Date: 20180810
  Receipt Date: 20180824
  Transmission Date: 20181010
  Serious: Yes (Other)
  Sender: FDA-Public Use
  Company Number: PHHO2017US010046

PATIENT
  Age: 63 Year
  Sex: Female
  Weight: 52 kg

DRUGS (7)
  1. LAMPRENE [Suspect]
     Active Substance: CLOFAZIMINE
     Indication: LUNG INFECTION
     Dosage: 50 MG, QD
     Route: 048
     Dates: start: 20170419, end: 20180514
  2. LAMPRENE [Suspect]
     Active Substance: CLOFAZIMINE
     Indication: MYCOBACTERIUM ABSCESSUS INFECTION
  3. AMIKACIN. [Concomitant]
     Active Substance: AMIKACIN
     Indication: MYCOBACTERIUM ABSCESSUS INFECTION
     Dosage: 300 MG, QD
     Route: 042
     Dates: start: 20170805
  4. AMIKACIN. [Concomitant]
     Active Substance: AMIKACIN
     Indication: LUNG INFECTION
     Dosage: 500 MG, TIW
     Route: 055
     Dates: start: 20170605
  5. IMIPENEM [Concomitant]
     Active Substance: IMIPENEM
     Indication: MYCOBACTERIUM ABSCESSUS INFECTION
     Dosage: 500 MG, BID
     Route: 042
     Dates: start: 20171123
  6. LAMPRENE [Suspect]
     Active Substance: CLOFAZIMINE
     Indication: DRUG HYPERSENSITIVITY
  7. IMIPENEM [Concomitant]
     Active Substance: IMIPENEM
     Indication: LUNG INFECTION
     Dosage: 500 MG, Q12H
     Route: 042
     Dates: start: 20170424

REACTIONS (9)
  - Gastric ulcer [Not Recovered/Not Resolved]
  - Tooth discolouration [Not Recovered/Not Resolved]
  - Gastrointestinal disorder [Unknown]
  - Chronic gastritis [Unknown]
  - Sensitivity of teeth [Not Recovered/Not Resolved]
  - Diarrhoea [Not Recovered/Not Resolved]
  - Skin discolouration [Not Recovered/Not Resolved]
  - Abdominal pain [Not Recovered/Not Resolved]
  - Intestinal metaplasia [Unknown]

NARRATIVE: CASE EVENT DATE: 201706
